FAERS Safety Report 6183971-5 (Version None)
Quarter: 2009Q2

REPORT INFORMATION
  Report Type: 
  Country: None (occurrence: None)
  Receive Date: 20090506
  Receipt Date: 20090506
  Transmission Date: 20091009
  Serious: No
  Sender: FDA-Public Use
  Company Number: None

PATIENT
  Sex: Female
  Weight: 68.18 kg

DRUGS (7)
  1. BUTALBITAL ACETAMINOPHEN AND CAFFEINE [Suspect]
     Dosage: 1 TAB Q4H ORAL
     Route: 048
     Dates: start: 20090204, end: 20090505
  2. CALCIUM + D [Concomitant]
  3. FOLATE (FOLIC ACID) [Concomitant]
  4. METHOTREXATE (RHEUM.) [Concomitant]
  5. NAPROXEN [Concomitant]
  6. NORETHINDRONE AND ETHINYL ESTRADIOL [Concomitant]
  7. RIBOFLAVIN TAB [Concomitant]

REACTIONS (1)
  - DIZZINESS [None]
